FAERS Safety Report 17566916 (Version 1)
Quarter: 2020Q1

REPORT INFORMATION
  Report Type: Spontaneous
  Country: MY (occurrence: MY)
  Receive Date: 20200320
  Receipt Date: 20200320
  Transmission Date: 20200409
  Serious: No
  Sender: FDA-Public Use
  Company Number: MY-TOLMAR, INC.-20MY019991

PATIENT
  Sex: Male

DRUGS (1)
  1. ELIGARD [Suspect]
     Active Substance: LEUPROLIDE ACETATE
     Indication: PRODUCT USED FOR UNKNOWN INDICATION
     Dosage: 22.5 MG
     Route: 065
     Dates: start: 20200107

REACTIONS (4)
  - Device leakage [None]
  - Wrong technique in product usage process [None]
  - Syringe issue [None]
  - Product administration error [None]

NARRATIVE: CASE EVENT DATE: 20200107
